FAERS Safety Report 6984633-4 (Version None)
Quarter: 2010Q3

REPORT INFORMATION
  Report Type: 
  Country: None (occurrence: None)
  Receive Date: 20100914
  Receipt Date: 20100914
  Transmission Date: 20110219
  Serious: No
  Sender: FDA-Public Use
  Company Number: None

PATIENT
  Age: 53 Year
  Sex: Female
  Weight: 68.0396 kg

DRUGS (12)
  1. PERCOCET [Suspect]
     Dosage: 2 TABS Q 4 HRS PO
     Route: 048
  2. SEROQUEL [Concomitant]
  3. GEODON [Concomitant]
  4. EFFEXOR [Concomitant]
  5. VIT C [Concomitant]
  6. AMOXICILLIN [Concomitant]
  7. OMEPRAZOLE [Concomitant]
  8. NICOTINE [Concomitant]
  9. MIRALAX [Concomitant]
  10. DOCUSATE [Concomitant]
  11. SENNA [Concomitant]
  12. PAXIL [Concomitant]

REACTIONS (1)
  - HALLUCINATION, AUDITORY [None]
